FAERS Safety Report 8935560 (Version 5)
Quarter: 2013Q1

REPORT INFORMATION
  Report Type: Spontaneous
  Country: JP (occurrence: JP)
  Receive Date: 20121130
  Receipt Date: 20130121
  Transmission Date: 20140127
  Serious: Yes (Hospitalization)
  Sender: FDA-Public Use
  Company Number: JP-ABBOTT-12P-087-1012768-00

PATIENT
  Sex: Male

DRUGS (3)
  1. LUVOX [Suspect]
     Indication: MATERNAL EXPOSURE TIMING UNSPECIFIED
     Route: 064
  2. MEILAX [Suspect]
     Indication: MATERNAL EXPOSURE TIMING UNSPECIFIED
     Route: 064
  3. HALCION [Suspect]
     Indication: MATERNAL EXPOSURE TIMING UNSPECIFIED
     Route: 064

REACTIONS (7)
  - Drug withdrawal syndrome neonatal [Unknown]
  - Irritability [Recovering/Resolving]
  - Crying [Unknown]
  - Hyperreflexia [Unknown]
  - Apnoeic attack [Recovering/Resolving]
  - Foetal exposure during pregnancy [Unknown]
  - Tremor [Recovering/Resolving]
